FAERS Safety Report 25226398 (Version 4)
Quarter: 2025Q2

REPORT INFORMATION
  Report Type: Spontaneous
  Country: JP (occurrence: JP)
  Receive Date: 20250422
  Receipt Date: 20250521
  Transmission Date: 20250716
  Serious: Yes (Death, Other)
  Sender: JOHNSON AND JOHNSON
  Company Number: JP-NShinyaku-EVA20250541301001307081

PATIENT
  Age: 80 Year
  Sex: Male

DRUGS (3)
  1. SELEXIPAG [Suspect]
     Active Substance: SELEXIPAG
     Indication: Pulmonary arterial hypertension
     Route: 048
     Dates: start: 20240925, end: 20250405
  2. OPSUMIT [Concomitant]
     Active Substance: MACITENTAN
     Indication: Pulmonary arterial hypertension
     Route: 048
     Dates: start: 20230412, end: 20250406
  3. OPSUMIT [Concomitant]
     Active Substance: MACITENTAN
     Route: 048
     Dates: start: 20230901

REACTIONS (3)
  - Cardiac arrest [Fatal]
  - Chronic obstructive pulmonary disease [Fatal]
  - Hypoxia [Not Recovered/Not Resolved]

NARRATIVE: CASE EVENT DATE: 20250405
